FAERS Safety Report 13726615 (Version 2)
Quarter: 2017Q3

REPORT INFORMATION
  Report Type: Spontaneous
  Country: US (occurrence: US)
  Receive Date: 20170707
  Receipt Date: 20170821
  Transmission Date: 20171127
  Serious: Yes (Hospitalization)
  Sender: FDA-Public Use
  Company Number: US-PFIZER INC-2017290985

PATIENT
  Age: 65 Year
  Sex: Female

DRUGS (1)
  1. EXEMESTANE. [Suspect]
     Active Substance: EXEMESTANE
     Indication: BREAST CANCER
     Dosage: 25 MG, DAILY
     Route: 048
     Dates: end: 2016

REACTIONS (5)
  - Myalgia [Recovering/Resolving]
  - Psoriasis [Unknown]
  - Fatigue [Recovering/Resolving]
  - Intentional product misuse [Unknown]
  - Gait disturbance [Recovering/Resolving]
